FAERS Safety Report 8128405-6 (Version None)
Quarter: 2012Q1

REPORT INFORMATION
  Report Type: 
  Country: None (occurrence: None)
  Receive Date: 20120210
  Receipt Date: 20120208
  Transmission Date: 20120608
  Serious: Yes (Other)
  Sender: FDA-Public Use
  Company Number: US-PFIZER INC-2011154079

PATIENT
  Sex: Male
  Weight: 81 kg

DRUGS (6)
  1. LIPITOR [Suspect]
     Indication: PROPHYLAXIS
     Dosage: UNK
     Route: 048
     Dates: start: 20000101, end: 20110101
  2. LIPITOR [Suspect]
     Indication: BLOOD CHOLESTEROL ABNORMAL
     Dosage: 75 MG, 1X/DAY
     Route: 048
  3. LIPITOR [Suspect]
     Indication: CARDIAC DISORDER
  4. ACETYLSALICYLIC ACID [Concomitant]
     Dosage: UNK
  5. LANTUS [Concomitant]
     Indication: DIABETES MELLITUS
     Dosage: 70 IU, AS NEEDED
  6. LANTUS [Concomitant]
     Dosage: UNK

REACTIONS (3)
  - BACK PAIN [None]
  - MYALGIA [None]
  - NERVE INJURY [None]
